FAERS Safety Report 17133151 (Version 4)
Quarter: 2019Q4

REPORT INFORMATION
  Report Type: Spontaneous
  Country: US (occurrence: US)
  Receive Date: 20191210
  Receipt Date: 20191231
  Transmission Date: 20200122
  Serious: Yes (Hospitalization)
  Sender: FDA-Public Use
  Company Number: US-UNITED THERAPEUTICS-UNT-2019-020034

PATIENT
  Age: 63 Year
  Sex: Female
  Weight: 54.38 kg

DRUGS (3)
  1. REMODULIN [Suspect]
     Active Substance: TREPROSTINIL
     Indication: PULMONARY ARTERIAL HYPERTENSION
     Dosage: 0.130 ?G/KG, CONTINUING
     Route: 058
     Dates: start: 20180514
  2. REMODULIN [Suspect]
     Active Substance: TREPROSTINIL
     Indication: PULMONARY HYPERTENSION
  3. AMBRISENTAN [Suspect]
     Active Substance: AMBRISENTAN
     Indication: PULMONARY HYPERTENSION
     Dosage: 5 MG, DAILY (QD)
     Route: 048

REACTIONS (3)
  - Diarrhoea [Unknown]
  - Dehydration [Unknown]
  - Incoherent [Unknown]

NARRATIVE: CASE EVENT DATE: 20191125
